FAERS Safety Report 10899419 (Version 2)
Quarter: 2015Q2

REPORT INFORMATION
  Report Type: Spontaneous
  Country: JP (occurrence: JP)
  Receive Date: 20150309
  Receipt Date: 20150401
  Transmission Date: 20150821
  Serious: Yes (Life-Threatening)
  Sender: FDA-Public Use
  Company Number: JP-KERYX BIOPHARMA UK LTD-2014JP000760

PATIENT

DRUGS (13)
  1. ARGAMATE [Concomitant]
     Active Substance: POLYSTYRENE
     Indication: HYPERKALAEMIA
     Dosage: UNK
     Route: 048
  2. RISUMIC [Suspect]
     Active Substance: AMEZINIUM METILSULFATE
     Indication: BLOOD PRESSURE DECREASED
     Dosage: 20 MG, UNK
     Route: 048
  3. ALFAROL [Concomitant]
     Active Substance: ALFACALCIDOL
     Indication: CHRONIC KIDNEY DISEASE
     Dosage: UNK
     Route: 048
  4. OPALMON [Concomitant]
     Active Substance: LIMAPROST
     Indication: ULCER
     Dosage: UNK
     Route: 048
  5. YAKUBAN [Concomitant]
     Active Substance: FLURBIPROFEN
     Indication: MYALGIA
     Dosage: 1 DF, UNK
     Route: 062
  6. BIOFERMIN                          /01617201/ [Concomitant]
     Active Substance: BACILLUS SUBTILIS\LACTOBACILLUS ACIDOPHILUS\STREPTOCOCCUS FAECAIS
     Indication: DYSBACTERIOSIS
     Dosage: UNK
     Route: 048
  7. CALTAN [Concomitant]
     Active Substance: CALCIUM CARBONATE
     Indication: HYPERPHOSPHATAEMIA
     Dosage: UNK
     Route: 048
  8. RIONA [Suspect]
     Active Substance: FERRIC CITRATE ANHYDROUS
     Indication: HYPERPHOSPHATAEMIA
     Dosage: 500 MG, TID
     Route: 048
     Dates: start: 20140929, end: 20141008
  9. PURSENNIDE                         /00571901/ [Concomitant]
     Indication: CONSTIPATION
     Dosage: UNK
     Route: 048
  10. MYSLEE [Concomitant]
     Active Substance: ZOLPIDEM TARTRATE
     Indication: INSOMNIA
     Dosage: UNK
     Route: 048
  11. L CARTIN [Concomitant]
     Indication: CARNITINE DEFICIENCY
     Dosage: UNK
     Route: 048
  12. TAKEPRON [Concomitant]
     Active Substance: LANSOPRAZOLE
     Indication: GASTRIC ULCER
     Dosage: UNK
     Route: 048
  13. VOLTAREN [Concomitant]
     Active Substance: DICLOFENAC SODIUM
     Indication: MYALGIA
     Dosage: 1 DF, UNK
     Route: 062

REACTIONS (2)
  - Blood pressure decreased [Recovered/Resolved]
  - Blood pressure systolic decreased [None]

NARRATIVE: CASE EVENT DATE: 20141001
